FAERS Safety Report 8129203-X (Version None)
Quarter: 2011Q4

REPORT INFORMATION
  Report Type: 
  Country: None (occurrence: None)
  Receive Date: 20111227
  Receipt Date: 20111024
  Transmission Date: 20120403
  Serious: No
  Sender: FDA-Public Use
  Company Number: PHHY2011US54720

PATIENT
  Age: 34 Year
  Sex: Female
  Weight: 81.6 kg

DRUGS (5)
  1. GILENYA [Suspect]
     Indication: MULTIPLE SCLEROSIS
     Dosage: 0.5 MG, QD, ORAL
     Route: 048
     Dates: start: 20110616
  2. GABAPENTIN (GABAPENTIN) CAPSULE, 100 MG [Concomitant]
  3. VITAMIN D (ERGOCALCIFEROL) CAPSULE [Concomitant]
  4. CARBAMAZEPINE (CARBAMAZEPINE) CAPSULE, 100 MG [Concomitant]
  5. TOPIRAMATE (TOPIRAMATE) TABLET, 25 MG [Concomitant]

REACTIONS (4)
  - VERTIGO POSITIONAL [None]
  - BACK PAIN [None]
  - ALOPECIA [None]
  - FLUSHING [None]
